FAERS Safety Report 15216163 (Version 1)
Quarter: 2018Q3

REPORT INFORMATION
  Report Type: Spontaneous
  Country: US (occurrence: US)
  Receive Date: 20180730
  Receipt Date: 20180730
  Transmission Date: 20181010
  Serious: Yes (Death, Hospitalization)
  Sender: FDA-Public Use
  Company Number: PHHY2018US050971

PATIENT
  Age: 20 Year
  Sex: Female

DRUGS (1)
  1. METHYLPREDNISOLONE. [Suspect]
     Active Substance: METHYLPREDNISOLONE
     Indication: AUTOIMMUNE DISORDER
     Dosage: UNK
     Route: 065

REACTIONS (6)
  - Right ventricular failure [Unknown]
  - Pulmonary haemorrhage [Unknown]
  - Hypoxia [Unknown]
  - Maternal exposure during pregnancy [Unknown]
  - Circulatory collapse [Unknown]
  - Autoimmune disorder [Fatal]
